FAERS Safety Report 20020554 (Version 6)
Quarter: 2022Q1

REPORT INFORMATION
  Report Type: Report from Study
  Country: BR (occurrence: BR)
  Receive Date: 20211101
  Receipt Date: 20220316
  Transmission Date: 20220423
  Serious: Yes (Other)
  Sender: FDA-Public Use
  Company Number: BR-NOVARTISPH-NVSC2021BR191332

PATIENT
  Age: 54 Year
  Sex: Female

DRUGS (9)
  1. AFINITOR [Suspect]
     Active Substance: EVEROLIMUS
     Indication: Breast cancer metastatic
     Dosage: APPROXIMATELY 45 DAYS TO AGO
     Route: 065
  2. AFINITOR [Suspect]
     Active Substance: EVEROLIMUS
     Dosage: QD
     Route: 065
     Dates: start: 20210719
  3. AFINITOR [Suspect]
     Active Substance: EVEROLIMUS
     Dosage: 10 MG
     Route: 065
     Dates: start: 20210719
  4. AFINITOR [Suspect]
     Active Substance: EVEROLIMUS
     Dosage: 5 MG
     Route: 065
  5. AFINITOR [Suspect]
     Active Substance: EVEROLIMUS
     Dosage: UNK
     Route: 065
  6. AFINITOR [Suspect]
     Active Substance: EVEROLIMUS
     Dosage: UNK
     Route: 065
     Dates: start: 20210719, end: 20220208
  7. EXEMESTANE [Concomitant]
     Active Substance: EXEMESTANE
     Indication: Neoplasm malignant
     Dosage: APPROXIMATELY 45 DAYS TO AGO
     Route: 065
  8. XGEVA [Concomitant]
     Active Substance: DENOSUMAB
     Indication: Hormone therapy
     Dosage: (EVERY 28 DAYS)
     Route: 065
  9. AROMASIN [Concomitant]
     Active Substance: EXEMESTANE
     Indication: Product used for unknown indication
     Dosage: UNK, QD
     Route: 065
     Dates: start: 20210719

REACTIONS (57)
  - Immunodeficiency [Unknown]
  - Diverticulitis [Unknown]
  - Metastases to spine [Unknown]
  - Breast cancer metastatic [Unknown]
  - Malignant neoplasm progression [Unknown]
  - Dry skin [Recovering/Resolving]
  - Gingivitis [Recovered/Resolved]
  - Aphthous ulcer [Recovered/Resolved]
  - Pain [Recovered/Resolved]
  - Taste disorder [Not Recovered/Not Resolved]
  - Decreased appetite [Not Recovered/Not Resolved]
  - Head discomfort [Unknown]
  - Tongue discomfort [Not Recovered/Not Resolved]
  - Nasal inflammation [Recovering/Resolving]
  - Skin swelling [Recovering/Resolving]
  - Stomatitis [Recovering/Resolving]
  - Inflammation [Recovering/Resolving]
  - Oral pain [Recovering/Resolving]
  - Gingival disorder [Recovering/Resolving]
  - Tongue disorder [Not Recovered/Not Resolved]
  - Capillary disorder [Recovering/Resolving]
  - Ill-defined disorder [Not Recovered/Not Resolved]
  - Acne [Recovered/Resolved]
  - Acne [Not Recovered/Not Resolved]
  - Oral pain [Recovered/Resolved]
  - Face oedema [Unknown]
  - Pain [Recovering/Resolving]
  - Gingival pain [Recovered/Resolved]
  - Alopecia [Recovering/Resolving]
  - Emotional disorder [Unknown]
  - Nausea [Unknown]
  - Headache [Recovering/Resolving]
  - Diarrhoea [Recovering/Resolving]
  - Gastrointestinal infection [Recovering/Resolving]
  - Vomiting [Recovering/Resolving]
  - Migraine [Recovering/Resolving]
  - Nail infection [Not Recovered/Not Resolved]
  - Aphthous ulcer [Recovered/Resolved]
  - Swelling [Unknown]
  - Candida infection [Unknown]
  - Movement disorder [Not Recovered/Not Resolved]
  - Gait disturbance [Not Recovered/Not Resolved]
  - Asthenia [Unknown]
  - Back pain [Not Recovered/Not Resolved]
  - Pelvic pain [Not Recovered/Not Resolved]
  - Arthralgia [Not Recovered/Not Resolved]
  - Pain in extremity [Not Recovered/Not Resolved]
  - Weight decreased [Unknown]
  - Insomnia [Unknown]
  - Onychoclasis [Not Recovered/Not Resolved]
  - Pelvic discomfort [Not Recovered/Not Resolved]
  - Discomfort [Unknown]
  - Spinal disorder [Unknown]
  - Erythema [Unknown]
  - Adverse event [Recovered/Resolved]
  - COVID-19 [Recovered/Resolved]
  - Drug ineffective [Unknown]

NARRATIVE: CASE EVENT DATE: 20210801
